FAERS Safety Report 10204546 (Version 1)
Quarter: 2014Q2

REPORT INFORMATION
  Report Type: Spontaneous
  Country: US (occurrence: US)
  Receive Date: 20140529
  Receipt Date: 20140529
  Transmission Date: 20141212
  Serious: No
  Sender: FDA-Public Use
  Company Number: US-SANOFI-AVENTIS-2013SA064803

PATIENT
  Age: 75 Year
  Sex: Female
  Weight: 68 kg

DRUGS (8)
  1. LANTUS SOLOSTAR [Suspect]
     Indication: TYPE 2 DIABETES MELLITUS
     Dosage: DOSE:20 UNIT(S)
     Route: 051
  2. SOLOSTAR [Suspect]
     Indication: TYPE 2 DIABETES MELLITUS
  3. NOVOLOG [Concomitant]
     Dosage: DOSE:8 UNIT(S)
     Route: 065
  4. LISINOPRIL [Concomitant]
     Indication: HYPERTENSION
     Dosage: HYDROCHLOROTHIAZIDE AND LISINOPRIL ARE IN COMBINATION.
     Route: 065
  5. GLIPIZIDE [Concomitant]
     Indication: DIABETES MELLITUS
     Route: 065
  6. METFORMIN [Concomitant]
     Indication: DIABETES MELLITUS
     Dosage: FREQUENCY: 4 PER DAY
     Route: 065
  7. ASPIRIN [Concomitant]
     Route: 065
  8. HYDROCHLOROTHIAZIDE [Concomitant]
     Dosage: HYDROCHLOROTHIAZIDE AND LISINOPRIL ARE IN COMBINATION.
     Route: 065

REACTIONS (1)
  - Injection site bruising [Unknown]
